FAERS Safety Report 7096291-1 (Version None)
Quarter: 2010Q4

REPORT INFORMATION
  Report Type: 
  Country: None (occurrence: None)
  Receive Date: 20101111
  Receipt Date: 20080922
  Transmission Date: 20110411
  Serious: No
  Sender: FDA-Public Use
  Company Number: US-KINGPHARMUSA00001-K200801116

PATIENT
  Age: 69 Year
  Sex: Male
  Weight: 85.261 kg

DRUGS (6)
  1. ALTACE [Suspect]
     Indication: HYPERTENSION
     Dosage: 5 MG, QD
     Route: 048
     Dates: start: 20030101, end: 20080901
  2. ALTACE [Suspect]
     Dosage: 5 MG, BID
     Route: 048
     Dates: start: 20080901
  3. SYNTHROID [Concomitant]
     Dosage: UNK, QD
     Route: 048
  4. ASPIRIN [Concomitant]
     Dosage: 81 MG, QD
     Route: 048
  5. AVODART [Concomitant]
     Indication: BENIGN PROSTATIC HYPERPLASIA
     Dosage: UNK, QD
     Route: 048
  6. OCUVITE                            /01762701/ [Concomitant]
     Indication: SUPPLEMENTATION THERAPY
     Dosage: 1 DOSE, QD
     Route: 048

REACTIONS (1)
  - BLOOD PRESSURE INCREASED [None]
